FAERS Safety Report 7755471-X (Version None)
Quarter: 2011Q3

REPORT INFORMATION
  Report Type: 
  Country: None (occurrence: None)
  Receive Date: 20110916
  Receipt Date: 20110913
  Transmission Date: 20111222
  Serious: Yes (Other)
  Sender: FDA-Public Use
  Company Number: US-PFIZER INC-2011104378

PATIENT
  Sex: Male

DRUGS (4)
  1. LIPITOR [Interacting]
     Indication: BLOOD TRIGLYCERIDES INCREASED
  2. MAXZIDE [Interacting]
     Indication: BLOOD PRESSURE ABNORMAL
     Dosage: UNK
     Route: 048
  3. LIPITOR [Suspect]
     Indication: BLOOD CHOLESTEROL INCREASED
     Dosage: UNK
     Route: 048
     Dates: start: 20100101, end: 20110101
  4. DILTIAZEM HCL [Interacting]
     Dosage: UNK

REACTIONS (3)
  - DRUG INTERACTION [None]
  - MYALGIA [None]
  - MUSCLE ATROPHY [None]
